FAERS Safety Report 6927427-8 (Version None)
Quarter: 2010Q3

REPORT INFORMATION
  Report Type: 
  Country: None (occurrence: None)
  Receive Date: 20100817
  Receipt Date: 20100806
  Transmission Date: 20110219
  Serious: No
  Sender: FDA-Public Use
  Company Number: US-JNJFOC-20100804118

PATIENT
  Sex: Male
  Weight: 108.86 kg

DRUGS (8)
  1. FENTANYL CITRATE [Suspect]
     Indication: PAIN IN EXTREMITY
  2. FENTANYL CITRATE [Suspect]
  3. FENTANYL CITRATE [Suspect]
     Indication: BACK PAIN
  4. FENTANYL CITRATE [Suspect]
  5. GLUCOTROL [Concomitant]
     Indication: BLOOD GLUCOSE ABNORMAL
     Route: 048
  6. NEURONTIN [Concomitant]
     Indication: PAIN
     Route: 048
  7. DILAUDID [Concomitant]
     Indication: PAIN
     Route: 048
  8. PRILOSEC [Concomitant]
     Indication: ABDOMINAL DISCOMFORT
     Route: 048

REACTIONS (5)
  - BLOOD TRIGLYCERIDES INCREASED [None]
  - DRUG EFFECT DECREASED [None]
  - HYPERTENSION [None]
  - PRODUCT ADHESION ISSUE [None]
  - WRONG TECHNIQUE IN DRUG USAGE PROCESS [None]
